FAERS Safety Report 6038856-1 (Version None)
Quarter: 2009Q1

REPORT INFORMATION
  Report Type: 
  Country: None (occurrence: None)
  Receive Date: 20090115
  Receipt Date: 20090108
  Transmission Date: 20090719
  Serious: Yes (Other)
  Sender: FDA-Public Use
  Company Number: US-JNJFOC-20070203895

PATIENT
  Sex: Female

DRUGS (3)
  1. ORTHO EVRA [Suspect]
     Indication: DRUG USE FOR UNKNOWN INDICATION
     Route: 062
  2. LEXAPRO [Concomitant]
  3. TOPROL-XL [Concomitant]

REACTIONS (2)
  - COLITIS ISCHAEMIC [None]
  - MENSTRUATION DELAYED [None]
